FAERS Safety Report 7552922-0 (Version None)
Quarter: 2011Q2

REPORT INFORMATION
  Report Type: 
  Country: None (occurrence: None)
  Receive Date: 20110616
  Receipt Date: 20110107
  Transmission Date: 20111010
  Serious: No
  Sender: FDA-Public Use
  Company Number: US-ASTRAZENECA-2011SE01311

PATIENT
  Age: 81 Year
  Sex: Female

DRUGS (11)
  1. FASLODEX [Suspect]
     Route: 030
     Dates: start: 20101208, end: 20101208
  2. LETROZOLE [Concomitant]
     Indication: BREAST CANCER
  3. INSULIN [Concomitant]
     Indication: DIABETES MELLITUS
  4. DIOVAN [Concomitant]
     Indication: HYPERTENSION
  5. FASLODEX [Suspect]
     Route: 030
     Dates: start: 20110106, end: 20110106
  6. PROCARDIA [Concomitant]
  7. LISINOPRIL [Concomitant]
     Indication: HYPERTENSION
  8. FASLODEX [Suspect]
     Indication: BREAST CANCER METASTATIC
     Route: 030
     Dates: start: 20101110, end: 20101110
  9. AMBIEN [Concomitant]
  10. ASPIRIN [Concomitant]
  11. PROZAC [Concomitant]

REACTIONS (4)
  - HYPOAESTHESIA [None]
  - PARAESTHESIA [None]
  - COUGH [None]
  - DYSGEUSIA [None]
